FAERS Safety Report 5497704-9 (Version None)
Quarter: 2007Q4

REPORT INFORMATION
  Report Type: 
  Country: None (occurrence: None)
  Receive Date: 20071025
  Receipt Date: 20070212
  Transmission Date: 20080405
  Serious: No
  Sender: FDA-Public Use
  Company Number: A0639060A

PATIENT
  Sex: Female

DRUGS (1)
  1. ADVAIR DISKUS 100/50 [Suspect]
     Indication: DRUG USE FOR UNKNOWN INDICATION
     Dosage: 2PUFF SINGLE DOSE
     Route: 055

REACTIONS (4)
  - COUGH [None]
  - DRY MOUTH [None]
  - DYSPHONIA [None]
  - ORAL PAIN [None]
